FAERS Safety Report 4944774-X (Version None)
Quarter: 2006Q1

REPORT INFORMATION
  Report Type: 
  Country: None (occurrence: None)
  Receive Date: 20060126
  Receipt Date: 20051026
  Transmission Date: 20060701
  Serious: Yes (Hospitalization)
  Sender: FDA-Public Use
  Company Number: USA0510110714

PATIENT
  Age: 72 Year
  Sex: Female

DRUGS (2)
  1. FORTEO [Suspect]
     Indication: OSTEOPOROSIS
     Dates: start: 20050801
  2. ZESTRIL [Concomitant]

REACTIONS (3)
  - ANXIETY [None]
  - BLOOD PRESSURE INCREASED [None]
  - SLEEP DISORDER [None]
